FAERS Safety Report 19755859 (Version 3)
Quarter: 2024Q3

REPORT INFORMATION
  Report Type: Report from Study
  Country: JP (occurrence: JP)
  Receive Date: 20210827
  Receipt Date: 20240806
  Transmission Date: 20241016
  Serious: No
  Sender: BIOGEN
  Company Number: JP-BIOGEN-2021BI01042726

PATIENT
  Sex: Male

DRUGS (2)
  1. SPINRAZA [Suspect]
     Active Substance: NUSINERSEN
     Indication: Spinal muscular atrophy
     Route: 037
     Dates: start: 20200121
  2. ONASEMNOGENE ABEPARVOVEC [Suspect]
     Active Substance: ONASEMNOGENE ABEPARVOVEC
     Indication: Spinal muscular atrophy
     Route: 065

REACTIONS (1)
  - No adverse event [Unknown]
